FAERS Safety Report 5564502-7 (Version None)
Quarter: 2007Q4

REPORT INFORMATION
  Report Type: 
  Country: None (occurrence: None)
  Receive Date: 20071218
  Receipt Date: 20071207
  Transmission Date: 20080405
  Serious: Yes (Other)
  Sender: FDA-Public Use
  Company Number: US-ELI_LILLY_AND_COMPANY-US200712001939

PATIENT
  Sex: Female
  Weight: 67.574 kg

DRUGS (2)
  1. LISPRO [Suspect]
     Dosage: 18 IU, OTHER
     Route: 058
     Dates: start: 19980101
  2. INSULIN GLARGINE [Suspect]
     Dosage: 25 IU, EACH MORNING
     Route: 058
     Dates: start: 20050201

REACTIONS (1)
  - DIABETIC KETOACIDOSIS [None]
